FAERS Safety Report 17914506 (Version 8)
Quarter: 2020Q4

REPORT INFORMATION
  Report Type: Spontaneous
  Country: ES (occurrence: ES)
  Receive Date: 20200619
  Receipt Date: 20201231
  Transmission Date: 20210113
  Serious: Yes (Hospitalization, Other)
  Sender: FDA-Public Use
  Company Number: ES-AUROBINDO-AUR-APL-2020-029179

PATIENT
  Age: 39 Year
  Sex: Male

DRUGS (15)
  1. PIPERACILLIN AND TAZOBACTAM [Suspect]
     Active Substance: PIPERACILLIN SODIUM\TAZOBACTAM SODIUM
     Dosage: 4 GRAM, 3 TIMES A DAY
     Route: 065
     Dates: end: 20200528
  2. NOLOTIL (METAMIZOLE MAGNESIUM) [Suspect]
     Active Substance: METAMIZOLE MAGNESIUM
     Indication: PYREXIA
     Dosage: 2 GRAM (AMPOULE )
     Route: 048
     Dates: start: 20200526, end: 20200527
  3. NOLOTIL (METAMIZOLE MAGNESIUM) [Suspect]
     Active Substance: METAMIZOLE MAGNESIUM
     Indication: ABDOMINAL PAIN
  4. TRIKAFTA [Suspect]
     Active Substance: ELEXACAFTOR\IVACAFTOR\TEZACAFTOR
     Indication: CYSTIC FIBROSIS
     Dosage: UNK (2 COMPRIMIDOS EN DESAYUNO Y 1 COMPRIMIDO EN CENA)
     Route: 048
     Dates: start: 20200518, end: 20200526
  5. TRIKAFTA [Suspect]
     Active Substance: ELEXACAFTOR\IVACAFTOR\TEZACAFTOR
     Dosage: HALF DOSE
     Route: 048
     Dates: start: 20200518, end: 20200518
  6. NOLOTIL (METAMIZOLE MAGNESIUM) [Suspect]
     Active Substance: METAMIZOLE MAGNESIUM
     Indication: ABDOMINAL PAIN
  7. PIPERACILLIN AND TAZOBACTAM [Suspect]
     Active Substance: PIPERACILLIN SODIUM\TAZOBACTAM SODIUM
     Dosage: 4 GRAM, 3 TIMES A DAY
     Route: 065
     Dates: start: 20200507, end: 20200526
  8. NOLOTIL (METAMIZOLE MAGNESIUM) [Suspect]
     Active Substance: METAMIZOLE MAGNESIUM
     Indication: PYREXIA
     Dosage: UNK
     Route: 065
  9. KALYDECO [Suspect]
     Active Substance: IVACAFTOR
     Dosage: UNK, 1 TABLET WITH DINNER
     Route: 048
     Dates: start: 20200519, end: 20200526
  10. NOLOTIL (METAMIZOLE MAGNESIUM) [Suspect]
     Active Substance: METAMIZOLE MAGNESIUM
     Indication: GASTROINTESTINAL DISORDER
  11. TRIKAFTA [Suspect]
     Active Substance: ELEXACAFTOR\IVACAFTOR\TEZACAFTOR
     Dosage: 3 DOSAGE FORM (2 TABLETS FOR BREAKFAST AND 1 TABLET FOR DINNER)
     Route: 048
     Dates: start: 20200519, end: 20200526
  12. KALYDECO [Suspect]
     Active Substance: IVACAFTOR
     Indication: CYSTIC FIBROSIS
     Dosage: HALF DOSE
     Route: 048
     Dates: start: 20200518, end: 20200518
  13. PIPERACILLIN AND TAZOBACTAM [Suspect]
     Active Substance: PIPERACILLIN SODIUM\TAZOBACTAM SODIUM
     Indication: RESPIRATORY TRACT INFECTION
     Dosage: 4 GRAM, 3 TIMES A DAY
     Route: 065
     Dates: start: 20200506
  14. METAMIZOL [Suspect]
     Active Substance: METAMIZOLE SODIUM
     Indication: PYREXIA
     Dosage: UNK
     Route: 065
     Dates: start: 20200526, end: 20200526
  15. METAMIZOL [Suspect]
     Active Substance: METAMIZOLE SODIUM
     Indication: ABDOMINAL PAIN

REACTIONS (11)
  - Pneumonia [Recovering/Resolving]
  - Acute respiratory failure [Recovering/Resolving]
  - Lymphopenia [Recovering/Resolving]
  - Generalised oedema [Unknown]
  - Rash erythematous [Not Recovered/Not Resolved]
  - Neutropenia [Recovered/Resolved]
  - Toxic epidermal necrolysis [Recovering/Resolving]
  - Thrombocytopenia [Recovering/Resolving]
  - Hyperbilirubinaemia [Recovering/Resolving]
  - Hypotension [Recovering/Resolving]
  - Blood bilirubin increased [Recovering/Resolving]

NARRATIVE: CASE EVENT DATE: 20200525
